FAERS Safety Report 4669031-0 (Version None)
Quarter: 2005Q2

REPORT INFORMATION
  Report Type: 
  Country: None (occurrence: None)
  Receive Date: 20050519
  Receipt Date: 20050511
  Transmission Date: 20051028
  Serious: Yes (Death)
  Sender: FDA-Public Use
  Company Number: 2005JP000993

PATIENT
  Age: 69 Year
  Sex: Female

DRUGS (2)
  1. FUNGUARD(MICAFUNGIN) INJECTION [Suspect]
     Dosage: 150.00 MG, UID/QD, IV DRIP
     Route: 041
     Dates: start: 20050201, end: 20050404
  2. VANCOMYCIN ^ABBOTT^/SPA(VANCOMYCIN HYDROCHLORIDE) [Concomitant]

REACTIONS (2)
  - HAEMORRHAGE [None]
  - VASCULAR RUPTURE [None]
